FAERS Safety Report 6509779-6 (Version None)
Quarter: 2009Q4

REPORT INFORMATION
  Report Type: 
  Country: None (occurrence: None)
  Receive Date: 20091222
  Receipt Date: 20091211
  Transmission Date: 20100525
  Serious: Yes (Hospitalization, Other)
  Sender: FDA-Public Use
  Company Number: US-AMGEN-QUU379668

PATIENT
  Sex: Male

DRUGS (1)
  1. ENBREL [Suspect]
     Indication: PSORIASIS
     Route: 058
     Dates: start: 20030201

REACTIONS (5)
  - DUODENAL SPHINCTEROTOMY [None]
  - HEPATIC CIRRHOSIS [None]
  - PANCREATITIS [None]
  - PSORIASIS [None]
  - URETERAL STENT INSERTION [None]
